FAERS Safety Report 5933050-4 (Version None)
Quarter: 2008Q4

REPORT INFORMATION
  Report Type: 
  Country: None (occurrence: None)
  Receive Date: 20081028
  Receipt Date: 20081015
  Transmission Date: 20090506
  Serious: Yes (Hospitalization)
  Sender: FDA-Public Use
  Company Number: US-ELI_LILLY_AND_COMPANY-US200810004159

PATIENT
  Sex: Female

DRUGS (7)
  1. FORTEO [Suspect]
     Indication: OSTEOPOROSIS
     Dates: start: 20070301
  2. PERCOCET [Concomitant]
  3. PREVACID [Concomitant]
  4. PLAVIX [Concomitant]
  5. ISORDIL [Concomitant]
  6. ASPIRIN [Concomitant]
  7. OXYGEN [Concomitant]
     Dates: start: 20040101

REACTIONS (6)
  - CHOKING [None]
  - CHRONIC OBSTRUCTIVE PULMONARY DISEASE [None]
  - DYSPNOEA [None]
  - FALL [None]
  - GASTRIC HAEMORRHAGE [None]
  - HAEMOPTYSIS [None]
